FAERS Safety Report 8842001 (Version 1)
Quarter: 2012Q4

REPORT INFORMATION
  Report Type: 
  Country: US (occurrence: US)
  Receive Date: 20121016
  Receipt Date: 20121016
  Transmission Date: 20130627
  Serious: Yes (Other)
  Sender: FDA-Public Use
  Company Number: US-JNJFOC-20121003434

PATIENT
  Sex: Female
  Weight: 53.52 kg

DRUGS (5)
  1. DURAGESIC [Suspect]
     Indication: PAIN
     Route: 062
  2. DURAGESIC [Suspect]
     Indication: PAIN
     Route: 062
  3. DURAGESIC [Suspect]
     Indication: PAIN
     Route: 062
     Dates: start: 2001
  4. DURAGESIC [Suspect]
     Indication: PAIN
     Route: 062
     Dates: start: 20120905
  5. METHADONE [Suspect]
     Indication: PRODUCT USED FOR UNKNOWN INDICATION
     Route: 065

REACTIONS (10)
  - Osteoporosis [Not Recovered/Not Resolved]
  - Arthritis [Not Recovered/Not Resolved]
  - Body height decreased [Not Recovered/Not Resolved]
  - Drug tolerance [Unknown]
  - Product quality issue [Unknown]
  - Panic attack [Recovered/Resolved]
  - Drug ineffective [Not Recovered/Not Resolved]
  - Adverse event [Unknown]
  - Dry skin [Not Recovered/Not Resolved]
  - Menopause [Not Recovered/Not Resolved]
